FAERS Safety Report 24976507 (Version 2)
Quarter: 2025Q1

REPORT INFORMATION
  Report Type: Spontaneous
  Country: JP (occurrence: JP)
  Receive Date: 20250217
  Receipt Date: 20250317
  Transmission Date: 20250409
  Serious: Yes (Other)
  Sender: Unknown Manufacturer
  Company Number: JP-CORZA MEDICAL GMBH-2025-JP-002282

PATIENT

DRUGS (1)
  1. TACHOSIL [Suspect]
     Active Substance: FIBRINOGEN HUMAN\HUMAN THROMBIN
     Indication: Cardiac aneurysm
     Route: 065

REACTIONS (3)
  - Cardiac pseudoaneurysm [Unknown]
  - Thrombosis [Unknown]
  - Off label use [Unknown]
